FAERS Safety Report 6006141-X (Version None)
Quarter: 2008Q4

REPORT INFORMATION
  Report Type: 
  Country: None (occurrence: None)
  Receive Date: 20081217
  Receipt Date: 20080505
  Transmission Date: 20090506
  Serious: No
  Sender: FDA-Public Use
  Company Number: US-BAUSCH-2008BL002119

PATIENT
  Age: 57 Year
  Sex: Male

DRUGS (3)
  1. ZYLET [Suspect]
     Indication: CONJUNCTIVITIS
     Route: 047
     Dates: start: 20080319, end: 20080331
  2. TRUSOPT /GFR/ [Concomitant]
  3. LUMIGAN [Concomitant]

REACTIONS (1)
  - INTRAOCULAR PRESSURE INCREASED [None]
